FAERS Safety Report 4524961-5 (Version None)
Quarter: 2004Q4

REPORT INFORMATION
  Report Type: 
  Country: None (occurrence: None)
  Receive Date: 20041117
  Receipt Date: 20030530
  Transmission Date: 20050328
  Serious: Yes (Hospitalization, Other)
  Sender: FDA-Public Use
  Company Number: C2003-1369.01

PATIENT
  Age: 61 Year
  Sex: Male

DRUGS (15)
  1. CLOZAPINE [Suspect]
     Indication: SCHIZOPHRENIA
     Dosage: 100 MG Q AM, 200MG Q HS, ORAL
     Route: 048
     Dates: start: 20030505, end: 20030602
  2. DICLOFENAC POTASSIUM [Concomitant]
  3. DIVALPROEX SODIUM ER [Concomitant]
  4. DOCUSATE SODIUM [Concomitant]
  5. FUROSEMIDE [Concomitant]
  6. GABAPENTIN [Concomitant]
  7. GLIPIZIDE [Concomitant]
  8. ISOSORBIDE MONONITRATE [Concomitant]
  9. LEVOTHYROXINE SODIUM [Concomitant]
  10. MISOPROSTOL [Concomitant]
  11. MULTI-VITAMIN [Concomitant]
  12. PHENYTOIN [Concomitant]
  13. PIOGLITAZONE HCL [Concomitant]
  14. POTASSIUM CHLORIDE [Concomitant]
  15. RAMIPRIL [Concomitant]

REACTIONS (2)
  - LEUKOPENIA [None]
  - NEUTROPENIA [None]
